FAERS Safety Report 15759396 (Version 23)
Quarter: 2025Q1

REPORT INFORMATION
  Report Type: Report from Study
  Country: DE (occurrence: DE)
  Receive Date: 20181226
  Receipt Date: 20250121
  Transmission Date: 20250409
  Serious: Yes (Hospitalization, Other)
  Sender: ROCHE
  Company Number: DE-ROCHE-2113766

PATIENT
  Age: 40 Year
  Sex: Female

DRUGS (16)
  1. OCREVUS [Suspect]
     Active Substance: OCRELIZUMAB
     Indication: Relapsing-remitting multiple sclerosis
     Route: 042
     Dates: start: 20180411, end: 20180411
  2. OCREVUS [Suspect]
     Active Substance: OCRELIZUMAB
     Route: 042
     Dates: start: 20180426, end: 20180426
  3. OCREVUS [Suspect]
     Active Substance: OCRELIZUMAB
     Route: 042
     Dates: start: 20181025
  4. OCREVUS [Suspect]
     Active Substance: OCRELIZUMAB
     Route: 042
     Dates: start: 20190417
  5. OCREVUS [Suspect]
     Active Substance: OCRELIZUMAB
     Route: 042
     Dates: start: 20191016
  6. OCREVUS [Suspect]
     Active Substance: OCRELIZUMAB
     Route: 042
     Dates: start: 20200402
  7. OCREVUS [Suspect]
     Active Substance: OCRELIZUMAB
     Route: 042
     Dates: start: 20201006
  8. OCREVUS [Suspect]
     Active Substance: OCRELIZUMAB
     Route: 042
     Dates: start: 20210329
  9. OCREVUS [Suspect]
     Active Substance: OCRELIZUMAB
     Route: 042
     Dates: start: 20210913
  10. CORTISONE [Suspect]
     Active Substance: CORTISONE
     Indication: Premedication
     Route: 065
  11. DALFAMPRIDINE [Concomitant]
     Active Substance: DALFAMPRIDINE
  12. CHOLECALCIFEROL [Concomitant]
     Active Substance: CHOLECALCIFEROL
  13. ALBUTEROL [Concomitant]
     Active Substance: ALBUTEROL
  14. ZINC [Concomitant]
     Active Substance: ZINC
     Route: 048
  15. VIGANTOL [Concomitant]
  16. VIGANTOL [Concomitant]

REACTIONS (52)
  - Tachycardia [Recovered/Resolved]
  - Blood pressure decreased [Recovered/Resolved]
  - Body temperature increased [Recovered/Resolved]
  - Fatigue [Recovered/Resolved]
  - Asthenia [Recovered/Resolved]
  - Intestinal obstruction [Recovered/Resolved]
  - Breast mass [Not Recovered/Not Resolved]
  - Off label use [Unknown]
  - Heart rate increased [Recovered/Resolved]
  - Nasopharyngitis [Recovered/Resolved]
  - Cystitis noninfective [Recovered/Resolved]
  - Subcutaneous abscess [Recovered/Resolved]
  - Folate deficiency [Recovered/Resolved]
  - Bronchitis [Recovered/Resolved]
  - Limb injury [Recovered/Resolved]
  - Peripheral coldness [Recovered/Resolved]
  - Herpes zoster [Recovered/Resolved]
  - Rash pruritic [Recovered/Resolved]
  - Neuralgia [Recovered/Resolved]
  - Temperature intolerance [Recovered/Resolved]
  - Fall [Unknown]
  - Erythema [Recovered/Resolved]
  - Feeling hot [Recovered/Resolved]
  - Nystagmus [Recovered/Resolved]
  - Malaise [Recovered/Resolved]
  - Cold sweat [Recovered/Resolved]
  - Endometriosis [Recovered/Resolved]
  - Nausea [Recovered/Resolved]
  - Wound complication [Recovered/Resolved]
  - Neuralgia [Recovered/Resolved]
  - COVID-19 [Recovered/Resolved]
  - Erythema [Recovered/Resolved]
  - Heart rate increased [Recovered/Resolved]
  - Headache [Recovered/Resolved]
  - Malaise [Recovered/Resolved]
  - Agitation [Unknown]
  - Speech disorder [Recovered/Resolved]
  - Thyroid mass [Recovered/Resolved]
  - Nervous system disorder [Recovered/Resolved]
  - Gait disturbance [Recovering/Resolving]
  - Asthenia [Recovering/Resolving]
  - Secondary progressive multiple sclerosis [Unknown]
  - Ultrasound scan abnormal [Recovered/Resolved]
  - Intervertebral disc protrusion [Unknown]
  - Diarrhoea [Recovered/Resolved]
  - Nocturia [Not Recovered/Not Resolved]
  - Fatigue [Recovered/Resolved]
  - Cystitis noninfective [Recovered/Resolved]
  - Tachycardia [Recovered/Resolved]
  - Menopause [Recovered/Resolved]
  - Neurodermatitis [Recovered/Resolved]
  - Chest discomfort [Recovered/Resolved]

NARRATIVE: CASE EVENT DATE: 20180411
